FAERS Safety Report 13134853 (Version 1)
Quarter: 2017Q1

REPORT INFORMATION
  Report Type: Spontaneous
  Country: US (occurrence: US)
  Receive Date: 20170120
  Receipt Date: 20170120
  Transmission Date: 20170428
  Serious: No
  Sender: FDA-Public Use
  Company Number: US-MEDA-2017010043

PATIENT
  Sex: Female

DRUGS (11)
  1. ASTEPRO [Concomitant]
     Active Substance: AZELASTINE HYDROCHLORIDE
     Indication: MITE ALLERGY
     Dates: start: 2012, end: 2016
  2. AZELASTINE HYDROCHLORIDE. [Suspect]
     Active Substance: AZELASTINE HYDROCHLORIDE
     Indication: MYCOTIC ALLERGY
  3. ASTEPRO [Concomitant]
     Active Substance: AZELASTINE HYDROCHLORIDE
     Indication: DUST ALLERGY
     Dates: start: 2012, end: 2016
  4. MELTUS [Concomitant]
  5. AZELASTINE HYDROCHLORIDE. [Suspect]
     Active Substance: AZELASTINE HYDROCHLORIDE
     Indication: DUST ALLERGY
  6. ASTEPRO [Concomitant]
     Active Substance: AZELASTINE HYDROCHLORIDE
     Indication: MYCOTIC ALLERGY
     Dates: start: 2012, end: 2016
  7. ASTEPRO [Concomitant]
     Active Substance: AZELASTINE HYDROCHLORIDE
     Indication: DUST ALLERGY
     Dates: start: 201701
  8. ASTEPRO [Concomitant]
     Active Substance: AZELASTINE HYDROCHLORIDE
     Indication: MITE ALLERGY
     Dates: start: 201701
  9. ASTEPRO [Concomitant]
     Active Substance: AZELASTINE HYDROCHLORIDE
     Indication: MYCOTIC ALLERGY
     Dates: start: 201701
  10. MUCINEX [Concomitant]
     Active Substance: GUAIFENESIN
  11. AZELASTINE HYDROCHLORIDE. [Suspect]
     Active Substance: AZELASTINE HYDROCHLORIDE
     Indication: MITE ALLERGY

REACTIONS (1)
  - Drug effect incomplete [Not Recovered/Not Resolved]
